FAERS Safety Report 6998591-X (Version None)
Quarter: 2010Q3

REPORT INFORMATION
  Report Type: 
  Country: None (occurrence: None)
  Receive Date: 20100920
  Receipt Date: 20100301
  Transmission Date: 20110219
  Serious: Yes (Other)
  Sender: FDA-Public Use
  Company Number: US-ASTRAZENECA-2009UW20647

PATIENT
  Sex: Female

DRUGS (4)
  1. SEROQUEL [Suspect]
     Dosage: 200 MG TO 600 MG
     Route: 048
     Dates: start: 20060227, end: 20070123
  2. HYDROCHLOROTHIAZIDE [Concomitant]
     Dates: start: 20070208
  3. ENALAPRIL [Concomitant]
     Dates: start: 20070208
  4. EFFEXOR XR [Concomitant]
     Dosage: 75 MG TO 225 MG
     Route: 048
     Dates: start: 20060227

REACTIONS (3)
  - DIABETES MELLITUS [None]
  - KETOACIDOSIS [None]
  - PANCREATITIS [None]
